FAERS Safety Report 21601740 (Version 1)
Quarter: 2022Q4

REPORT INFORMATION
  Report Type: Spontaneous
  Country: US (occurrence: None)
  Receive Date: 20221115
  Receipt Date: 20221115
  Transmission Date: 20230113
  Serious: Yes (Other)
  Sender: FDA-Public Use
  Company Number: None

PATIENT
  Age: 64 Year
  Sex: Female

DRUGS (17)
  1. SCEMBLIX [Suspect]
     Active Substance: ASCIMINIB HYDROCHLORIDE
     Dosage: FREQUENCY : DAILY;?
     Route: 048
     Dates: start: 20220920, end: 20221024
  2. AMITIZA [Concomitant]
     Active Substance: LUBIPROSTONE
  3. BIOTIN [Concomitant]
     Active Substance: BIOTIN
  4. BUPIVACAINE [Concomitant]
     Active Substance: BUPIVACAINE
  5. CLOPIDOGREL [Concomitant]
     Active Substance: CLOPIDOGREL BISULFATE
  6. DILAUDID-5 [Concomitant]
  7. ESTRADIOL [Concomitant]
     Active Substance: ESTRADIOL
  8. FERROUS SULFATE [Concomitant]
     Active Substance: FERROUS SULFATE
  9. FIORICET/COD [Concomitant]
  10. LEVOTHYROXINE [Concomitant]
     Active Substance: LEVOTHYROXINE
  11. LOPERAMIDE [Concomitant]
     Active Substance: LOPERAMIDE
  12. METOPROLOL TARTRATE [Concomitant]
     Active Substance: METOPROLOL TARTRATE
  13. MORPHINE SULFATE [Concomitant]
     Active Substance: MORPHINE SULFATE
  14. PANTOPRAZOLE [Concomitant]
     Active Substance: PANTOPRAZOLE
  15. TRAZODONE [Concomitant]
     Active Substance: TRAZODONE HYDROCHLORIDE
  16. VITAMIN B12 [Concomitant]
     Active Substance: CYANOCOBALAMIN
  17. VITAMIN D3 [Concomitant]
     Active Substance: CHOLECALCIFEROL

REACTIONS (5)
  - Headache [None]
  - Nausea [None]
  - Vision blurred [None]
  - Neuropathy peripheral [None]
  - Malaise [None]

NARRATIVE: CASE EVENT DATE: 20220920
